FAERS Safety Report 8492984-X (Version None)
Quarter: 2012Q3

REPORT INFORMATION
  Report Type: 
  Country: None (occurrence: None)
  Receive Date: 20120706
  Receipt Date: 20120626
  Transmission Date: 20120928
  Serious: Yes (Other)
  Sender: FDA-Public Use
  Company Number: US-JNJFOC-20120613431

PATIENT
  Sex: Female
  Weight: 100.25 kg

DRUGS (11)
  1. LASIX [Concomitant]
     Route: 048
     Dates: end: 20120501
  2. PRILOSEC [Concomitant]
     Indication: GASTROOESOPHAGEAL REFLUX DISEASE
     Route: 048
  3. ADVAIR DISKUS 100/50 [Concomitant]
     Indication: ASTHMA
     Dosage: 2 PUFFS DAILY
     Route: 055
  4. PREDNISONE [Concomitant]
     Indication: NEPHROPATHY
     Route: 048
     Dates: end: 20120501
  5. PREDNISONE [Concomitant]
     Route: 048
  6. HYDROCODONE BITARTRATE [Concomitant]
     Indication: PAIN
     Route: 048
  7. LASIX [Concomitant]
     Indication: OEDEMA PERIPHERAL
     Route: 048
  8. CETIRIZINE HCL [Concomitant]
     Indication: MULTIPLE ALLERGIES
  9. NEPRO [Concomitant]
     Indication: NEPHROPATHY
     Route: 048
  10. XARELTO [Suspect]
     Indication: ATRIAL FIBRILLATION
     Route: 048
     Dates: start: 20120101
  11. SPIRONOLACTONE [Concomitant]
     Indication: OEDEMA PERIPHERAL
     Route: 048
     Dates: end: 20120501

REACTIONS (3)
  - INSOMNIA [None]
  - WEIGHT DECREASED [None]
  - RENAL CANCER [None]
